FAERS Safety Report 6580803-8 (Version None)
Quarter: 2010Q1

REPORT INFORMATION
  Report Type: 
  Country: None (occurrence: None)
  Receive Date: 20100215
  Receipt Date: 20100209
  Transmission Date: 20100710
  Serious: Yes (Hospitalization, Other)
  Sender: FDA-Public Use
  Company Number: US-ASTRAZENECA-2007UW18851

PATIENT
  Age: 8416 Day
  Sex: Female
  Weight: 69.9 kg

DRUGS (34)
  1. SEROQUEL [Suspect]
     Indication: BIPOLAR DISORDER
     Route: 048
     Dates: start: 20000101
  2. SEROQUEL [Suspect]
     Route: 048
     Dates: start: 20010402
  3. SEROQUEL [Suspect]
     Route: 048
     Dates: start: 20020125
  4. SEROQUEL [Suspect]
     Route: 048
     Dates: start: 20020501
  5. SEROQUEL [Suspect]
     Route: 048
     Dates: start: 20081203
  6. SEROQUEL [Suspect]
     Dosage: 200-800 MG
     Route: 048
  7. RISPERDAL [Concomitant]
     Route: 065
  8. ZYPREXA [Concomitant]
     Dosage: 6-10 MG
     Route: 065
  9. AMBIEN [Concomitant]
     Indication: SLEEP DISORDER
     Route: 065
     Dates: start: 20040801
  10. VISTARIL [Concomitant]
     Dosage: 50-75 MG
     Route: 065
  11. KLONOPIN [Concomitant]
     Dosage: 0.5-1 MG
     Route: 048
  12. GLUCOPHAGE [Concomitant]
     Route: 048
  13. IMITREX [Concomitant]
     Indication: HEADACHE
     Route: 002
  14. TRICOR [Concomitant]
     Route: 048
  15. MAXALT [Concomitant]
     Route: 065
  16. TYLENOL-500 [Concomitant]
     Route: 065
  17. LEXAPRO [Concomitant]
     Dosage: 10-20 MG
     Route: 065
  18. LUNESTA [Concomitant]
     Route: 048
  19. TRILEPTAL [Concomitant]
     Dosage: 150-600 MG
     Route: 065
  20. ATIVAN [Concomitant]
     Indication: ANXIETY
     Route: 065
  21. TOPAMAX [Concomitant]
     Route: 048
  22. CAPOTEN [Concomitant]
     Route: 048
  23. ZESTRIL [Concomitant]
     Route: 065
  24. SOMA [Concomitant]
     Route: 048
  25. DESYREL [Concomitant]
     Route: 065
  26. BUSPAR [Concomitant]
     Route: 065
  27. PROZAC [Concomitant]
     Dates: start: 20020125
  28. PROZAC [Concomitant]
     Route: 048
     Dates: start: 20020501
  29. RESTORIL [Concomitant]
     Dates: start: 20020125
  30. NEURONTIN [Concomitant]
     Dates: start: 20020125
  31. NEURONTIN [Concomitant]
     Route: 065
  32. NEURONTIN [Concomitant]
     Route: 048
     Dates: start: 20020501
  33. LITHOBID [Concomitant]
     Dosage: 300-600 MG
     Route: 065
  34. DEPAKOTE [Concomitant]
     Dates: start: 20020125

REACTIONS (46)
  - ABDOMINAL PAIN [None]
  - ABDOMINAL PAIN UPPER [None]
  - ANGER [None]
  - APPENDICITIS [None]
  - ASTHENIA [None]
  - BACK PAIN [None]
  - BARTHOLIN'S ABSCESS [None]
  - BARTHOLIN'S CYST [None]
  - BIPOLAR I DISORDER [None]
  - BREAST PAIN [None]
  - CERVICAL DYSPLASIA [None]
  - CERVIX CARCINOMA STAGE 0 [None]
  - CHEST DISCOMFORT [None]
  - CONFUSIONAL STATE [None]
  - DIABETES MELLITUS [None]
  - DIPLOPIA [None]
  - DIZZINESS [None]
  - DRUG ABUSE [None]
  - DRUG DEPENDENCE [None]
  - DYSPHORIA [None]
  - DYSPNOEA [None]
  - DYSURIA [None]
  - EAR PAIN [None]
  - FLANK PAIN [None]
  - GENITAL HERPES [None]
  - GROIN PAIN [None]
  - HEADACHE [None]
  - HYPERCHOLESTEROLAEMIA [None]
  - JOINT SPRAIN [None]
  - MAJOR DEPRESSION [None]
  - MOOD SWINGS [None]
  - MUSCLE SPASMS [None]
  - NECK PAIN [None]
  - PALPITATIONS [None]
  - PARANOIA [None]
  - POST-TRAUMATIC STRESS DISORDER [None]
  - RENAL PAIN [None]
  - SLEEP APNOEA SYNDROME [None]
  - SUICIDAL IDEATION [None]
  - TOBACCO ABUSE [None]
  - URINARY TRACT INFECTION [None]
  - VAGINAL DISCHARGE [None]
  - VAGINAL INFECTION [None]
  - VISION BLURRED [None]
  - VULVOVAGINAL PRURITUS [None]
  - WEIGHT INCREASED [None]
